FAERS Safety Report 6850606-5 (Version None)
Quarter: 2010Q3

REPORT INFORMATION
  Report Type: 
  Country: None (occurrence: None)
  Receive Date: 20100716
  Receipt Date: 20071012
  Transmission Date: 20110219
  Serious: No
  Sender: FDA-Public Use
  Company Number: US-PFIZER INC-2007087464

PATIENT
  Sex: Female
  Weight: 63.5 kg

DRUGS (3)
  1. CHANTIX [Suspect]
     Indication: SMOKING CESSATION THERAPY
     Dates: start: 20071008
  2. ALCOHOL [Interacting]
  3. DRUG, UNSPECIFIED [Concomitant]

REACTIONS (4)
  - DIARRHOEA [None]
  - DRUG INTERACTION [None]
  - MIGRAINE [None]
  - VOMITING [None]
